FAERS Safety Report 4716335-9 (Version None)
Quarter: 2005Q3

REPORT INFORMATION
  Report Type: 
  Country: None (occurrence: None)
  Receive Date: 20050711
  Receipt Date: 20050524
  Transmission Date: 20060218
  Serious: Yes (Hospitalization)
  Sender: FDA-Public Use
  Company Number: 004867

PATIENT
  Age: 46 Year
  Sex: Female
  Weight: 94.8 kg

DRUGS (1)
  1. SEASONALE [Suspect]
     Indication: MENSTRUATION IRREGULAR
     Dosage: 1.00 TABLET, QD, ORAL
     Route: 048
     Dates: start: 20050223, end: 20050516

REACTIONS (2)
  - CEREBROVASCULAR ACCIDENT [None]
  - HYPOAESTHESIA [None]
